FAERS Safety Report 10081040 (Version 1)
Quarter: 2014Q2

REPORT INFORMATION
  Report Type: Spontaneous
  Country: US (occurrence: None)
  Receive Date: 20140414
  Receipt Date: 20140414
  Transmission Date: 20141212
  Serious: Yes (Hospitalization)
  Sender: FDA-Public Use
  Company Number: UTC-046864

PATIENT
  Age: 52 Year
  Sex: Female

DRUGS (8)
  1. TYVASO [Suspect]
     Indication: PULMONARY ARTERIAL HYPERTENSION
     Route: 055
     Dates: start: 20130927
  2. TRAZODONE HCL(TRAZODONE HYDROCHLORIDE) [Concomitant]
  3. ADCIRCA(TADALAFIL) [Concomitant]
  4. PROAIR HFA (SALBUTAMOL SULFATE) [Concomitant]
  5. MAGNESIUM OXIDE (MAGNESIUM OXIDE) [Concomitant]
  6. LISINOPRIL(LISINOPRIL) [Concomitant]
  7. FUROSEMIDE(FUROSEMIDE) [Concomitant]
  8. ATORVASTATIN CALCIUM (ATORVASTATIN CALCIUM)(UKNOWN) [Concomitant]

REACTIONS (1)
  - Dyspnoea [None]
